FAERS Safety Report 19973680 (Version 1)
Quarter: 2021Q4

REPORT INFORMATION
  Report Type: Spontaneous
  Country: JP (occurrence: JP)
  Receive Date: 20211020
  Receipt Date: 20211020
  Transmission Date: 20220304
  Serious: Yes (Other)
  Sender: FDA-Public Use
  Company Number: JP-BAYER-2021A227594

PATIENT
  Age: 60 Year
  Sex: Male

DRUGS (1)
  1. JIVI [Suspect]
     Active Substance: DAMOCTOCOG ALFA PEGOL
     Indication: Haemostasis
     Dosage: 3000 IU
     Route: 042
     Dates: start: 20190530

REACTIONS (2)
  - Duodenal ulcer [Recovered/Resolved]
  - COVID-19 [Recovered/Resolved]
